FAERS Safety Report 7562458-9 (Version None)
Quarter: 2011Q2

REPORT INFORMATION
  Report Type: 
  Country: None (occurrence: None)
  Receive Date: 20110622
  Receipt Date: 20110613
  Transmission Date: 20111010
  Serious: Yes (Hospitalization)
  Sender: FDA-Public Use
  Company Number: US-US-EMD SERONO, INC.-7046170

PATIENT
  Sex: Female

DRUGS (1)
  1. REBIF [Suspect]
     Indication: PRODUCT USED FOR UNKNOWN INDICATION
     Route: 058
     Dates: start: 20100211, end: 20110401

REACTIONS (4)
  - CENTRAL NERVOUS SYSTEM LESION [None]
  - HEADACHE [None]
  - DRUG INEFFECTIVE [None]
  - GAIT DISTURBANCE [None]
